FAERS Safety Report 8730325 (Version 3)
Quarter: 2012Q4

REPORT INFORMATION
  Report Type: 
  Country: JP (occurrence: JP)
  Receive Date: 20120817
  Receipt Date: 20120917
  Transmission Date: 20130627
  Serious: Yes (Life-Threatening, Hospitalization, Other)
  Sender: FDA-Public Use
  Company Number: JP-PFIZER INC-2012195205

PATIENT
  Age: 79 Year
  Sex: Female
  Weight: 53 kg

DRUGS (11)
  1. LYRICA [Suspect]
     Indication: DIABETIC VASCULAR DISORDER
     Dosage: 50 mg daily
     Route: 048
     Dates: start: 20110829, end: 20110904
  2. LYRICA [Suspect]
     Dosage: 25 mg, 1x/day
     Route: 048
     Dates: start: 20110905, end: 20120720
  3. LYRICA [Suspect]
     Dosage: 25 mg, 2x/day
     Route: 048
     Dates: start: 20120721, end: 20120728
  4. LYRICA [Suspect]
     Dosage: 25 mg, 2x/day
     Route: 048
     Dates: start: 20120821
  5. NOVORAPID [Suspect]
     Indication: TYPE 2 DIABETES MELLITUS
     Dosage: 4 IU, 3x/day
     Route: 058
     Dates: start: 20090928, end: 20120728
  6. BAYASPIRIN [Concomitant]
     Indication: CAROTID ARTERY STENOSIS
     Dosage: 100 mg, 1x/day
     Route: 048
     Dates: start: 20090928, end: 20120728
  7. LASIX [Concomitant]
     Indication: OEDEMA DUE TO CARDIAC DISEASE
     Dosage: 20 mg, 1x/day
     Route: 048
     Dates: start: 20090928, end: 20120728
  8. LUPRAC [Concomitant]
     Indication: OEDEMA DUE TO CARDIAC DISEASE
     Dosage: 4 mg, 1x/day
     Route: 048
     Dates: start: 20090928, end: 20120728
  9. CONIEL [Concomitant]
     Indication: HYPERTENSION
     Dosage: 2 mg, 2x/day
     Route: 048
     Dates: start: 20090928, end: 20120728
  10. BONALON [Concomitant]
     Indication: OSTEOPOROSIS
     Dosage: 35 mg, weekly
     Route: 048
     Dates: start: 20100621, end: 20120728
  11. FAMOTIDINE [Concomitant]
     Indication: GASTRITIS
     Dosage: 10 mg, 1x/day
     Route: 048
     Dates: start: 20090928, end: 20120728

REACTIONS (1)
  - Hypoglycaemic coma [Recovered/Resolved with Sequelae]
